FAERS Safety Report 8094543-X (Version None)
Quarter: 2012Q1

REPORT INFORMATION
  Report Type: 
  Country: None (occurrence: None)
  Receive Date: 20120126
  Receipt Date: 20120116
  Transmission Date: 20120608
  Serious: Yes (Hospitalization)
  Sender: FDA-Public Use
  Company Number: UTC-014686

PATIENT
  Age: 70 Year
  Sex: Female

DRUGS (2)
  1. BOSENTAN (BOSENTAN) [Concomitant]
  2. REMODULIN [Suspect]
     Indication: PULMONARY ARTERIAL HYPERTENSION
     Dosage: SUBCUTANEOUS 30.24 UG/KG (0.021 UG/KG, 1 IN 1 MIN), SUBCUTANEOUS
     Route: 058
     Dates: end: 20090101

REACTIONS (2)
  - INFUSION SITE INFECTION [None]
  - INFUSION SITE PAIN [None]
